FAERS Safety Report 11981918 (Version 2)
Quarter: 2018Q1

REPORT INFORMATION
  Report Type: Report from Study
  Country: BR (occurrence: BR)
  Receive Date: 20160201
  Receipt Date: 20180321
  Transmission Date: 20180508
  Serious: Yes (Other)
  Sender: FDA-Public Use
  Company Number: BR-ROCHE-1658494

PATIENT
  Age: 56 Year
  Sex: Female
  Weight: 42 kg

DRUGS (10)
  1. AMLODIPINE [Concomitant]
     Active Substance: AMLODIPINE BESYLATE
     Indication: HYPERTENSION
  2. OMEPRAZOLE. [Concomitant]
     Active Substance: OMEPRAZOLE
     Indication: GASTRIC DISORDER
  3. ACTEMRA [Suspect]
     Active Substance: TOCILIZUMAB
     Indication: RHEUMATOID ARTHRITIS
     Route: 042
     Dates: start: 20150728
  4. PREDNISONE. [Concomitant]
     Active Substance: PREDNISONE
  5. MABTHERA [Suspect]
     Active Substance: RITUXIMAB
     Indication: RHEUMATOID ARTHRITIS
     Dosage: LATEST RECEIVED INFUSION ON 08/MAR/2018
     Route: 042
  6. METFORMIN HYDROCHLORIDE. [Concomitant]
     Active Substance: METFORMIN HYDROCHLORIDE
  7. ACTEMRA [Suspect]
     Active Substance: TOCILIZUMAB
     Route: 042
     Dates: start: 20150929
  8. SIMVASTATIN. [Concomitant]
     Active Substance: SIMVASTATIN
     Indication: BLOOD CHOLESTEROL INCREASED
  9. LEFLUNOMIDE. [Concomitant]
     Active Substance: LEFLUNOMIDE
  10. GLYCOMIN [Concomitant]
     Dosage: 4 DOSES
     Route: 065

REACTIONS (8)
  - Chest discomfort [Unknown]
  - Feeling hot [Unknown]
  - Paraesthesia [Unknown]
  - Pruritus [Unknown]
  - Dyspnoea [Unknown]
  - Throat irritation [Recovered/Resolved]
  - Malaise [Unknown]
  - Dysgeusia [Unknown]

NARRATIVE: CASE EVENT DATE: 201510
